FAERS Safety Report 25972974 (Version 1)
Quarter: 2025Q4

REPORT INFORMATION
  Report Type: Spontaneous
  Country: CN (occurrence: CN)
  Receive Date: 20251029
  Receipt Date: 20251029
  Transmission Date: 20260118
  Serious: Yes (Other)
  Sender: IDORSIA PHARMACEUTICALS
  Company Number: CN-HAINAN SIMCERE CO., LTD.-2025XSYY4312

PATIENT
  Age: 29 Year
  Sex: Female

DRUGS (2)
  1. QUVIVIQ [Suspect]
     Active Substance: DARIDOREXANT
     Indication: Initial insomnia
     Dosage: 1 DOSAGE FORM, SINGLE
     Route: 048
     Dates: start: 20251016
  2. QUVIVIQ [Suspect]
     Active Substance: DARIDOREXANT
     Dosage: 2 DOSAGE FORM, SINGLE
     Route: 048
     Dates: start: 20251017

REACTIONS (6)
  - Loss of consciousness [Recovered/Resolved]
  - Abnormal dreams [Unknown]
  - Drug ineffective [Unknown]
  - Muscle twitching [Recovered/Resolved]
  - Sleep paralysis [Recovered/Resolved]
  - Overdose [Unknown]

NARRATIVE: CASE EVENT DATE: 20251016
